FAERS Safety Report 9717899 (Version 1)
Quarter: 2013Q4

REPORT INFORMATION
  Report Type: Spontaneous
  Country: US (occurrence: US)
  Receive Date: 20131125
  Receipt Date: 20131125
  Transmission Date: 20140711
  Serious: No
  Sender: FDA-Public Use
  Company Number: US-VIVUS-2013V1000359

PATIENT
  Sex: Female
  Weight: 104.87 kg

DRUGS (5)
  1. QSYMIA 3.75MG/23MG [Suspect]
     Route: 048
  2. QSYMIA 7.5MG/46MG [Suspect]
     Route: 048
  3. GLIMEPIRIDE [Concomitant]
     Indication: PRODUCT USED FOR UNKNOWN INDICATION
     Route: 048
  4. ASPIRIN [Concomitant]
     Indication: PRODUCT USED FOR UNKNOWN INDICATION
     Route: 048
  5. ACTOPLUS MET [Concomitant]
     Indication: PRODUCT USED FOR UNKNOWN INDICATION
     Dosage: 15 MG- 850 MG
     Route: 048

REACTIONS (2)
  - Influenza [Recovered/Resolved]
  - Depression [Not Recovered/Not Resolved]
